FAERS Safety Report 5059478-5 (Version None)
Quarter: 2006Q3

REPORT INFORMATION
  Report Type: 
  Country: None (occurrence: None)
  Receive Date: 20060724
  Receipt Date: 20060712
  Transmission Date: 20061208
  Serious: Yes (Other)
  Sender: FDA-Public Use
  Company Number: PHEH2006US08972

PATIENT
  Age: 59 Year
  Sex: Female

DRUGS (9)
  1. CEFTIN [Concomitant]
  2. TAXOTERE [Concomitant]
     Indication: BREAST CANCER METASTATIC
     Dosage: 60 MG EVERY OTHER WEEK
     Dates: start: 20050512
  3. HERCEPTIN [Concomitant]
     Indication: BREAST CANCER METASTATIC
  4. ADRIAMYCIN PFS [Concomitant]
     Dosage: 106 MG, 4 TREATMENTS
     Dates: start: 19990408, end: 19990708
  5. ADRIAMYCIN PFS [Concomitant]
     Dosage: 18 MG EVERY WEEK
     Dates: start: 20030211, end: 20050421
  6. FEMARA [Concomitant]
     Dosage: 2.5 MG, QD
     Dates: start: 20010806, end: 20030515
  7. ARIMIDEX [Concomitant]
     Dosage: 1 MG, QD
     Dates: start: 20030522, end: 20031002
  8. FASLODEX [Concomitant]
     Dosage: 250 MG MONTHLY
     Dates: start: 20031022, end: 20030311
  9. ZOMETA [Suspect]
     Indication: METASTASES TO BONE
     Dosage: MONTHLY
     Dates: start: 20020808, end: 20060712

REACTIONS (24)
  - ALOPECIA [None]
  - ANAEMIA [None]
  - DIARRHOEA [None]
  - DYSPAREUNIA [None]
  - ERYTHEMA [None]
  - FATIGUE [None]
  - FLUSHING [None]
  - IMPAIRED HEALING [None]
  - MALAISE [None]
  - MUSCULOSKELETAL PAIN [None]
  - OPEN WOUND [None]
  - ORAL DISCOMFORT [None]
  - ORAL INTAKE REDUCED [None]
  - OSTEONECROSIS [None]
  - PALLOR [None]
  - PHARYNGITIS [None]
  - PHARYNGOLARYNGEAL PAIN [None]
  - PYREXIA [None]
  - SINUSITIS [None]
  - TEETH BRITTLE [None]
  - TOOTH EXTRACTION [None]
  - TOOTH INJURY [None]
  - UPPER RESPIRATORY TRACT INFECTION [None]
  - WHITE BLOOD CELL COUNT INCREASED [None]
